FAERS Safety Report 5505643-X (Version None)
Quarter: 2007Q4

REPORT INFORMATION
  Report Type: 
  Country: None (occurrence: None)
  Receive Date: 20071102
  Receipt Date: 20071022
  Transmission Date: 20080405
  Serious: Yes (Other)
  Sender: FDA-Public Use
  Company Number: US-PFIZER INC-2007071707

PATIENT
  Sex: Female
  Weight: 49.9 kg

DRUGS (6)
  1. CHANTIX [Suspect]
     Indication: SMOKING CESSATION THERAPY
  2. CYMBALTA [Concomitant]
  3. ACTONEL [Concomitant]
  4. TOPAMAX [Concomitant]
  5. COZAAR [Concomitant]
  6. PREMPRO [Concomitant]

REACTIONS (6)
  - ASTHENIA [None]
  - DIZZINESS [None]
  - IMPAIRED DRIVING ABILITY [None]
  - NAUSEA [None]
  - TREMOR [None]
  - VISION BLURRED [None]
